FAERS Safety Report 10066532 (Version 1)
Quarter: 2014Q2

REPORT INFORMATION
  Report Type: Spontaneous
  Country: US (occurrence: None)
  Receive Date: 20140401
  Receipt Date: 20140401
  Transmission Date: 20141212
  Serious: Yes (Other)
  Sender: FDA-Public Use
  Company Number: PHEH2013US007773

PATIENT
  Age: 75 Year
  Sex: Female

DRUGS (1)
  1. EXELON PATCH (RIVASTIGMINE) TRANS-THERAPEUTIC-SYSTEM, 9.5MG [Suspect]
     Indication: DEMENTIA ALZHEIMER^S TYPE
     Route: 062
     Dates: start: 20120915

REACTIONS (3)
  - Urinary tract infection [None]
  - Hypokinesia [None]
  - Diarrhoea [None]
